FAERS Safety Report 4618343-5 (Version None)
Quarter: 2005Q1

REPORT INFORMATION
  Report Type: 
  Country: None (occurrence: None)
  Receive Date: 20050324
  Receipt Date: 20030929
  Transmission Date: 20050727
  Serious: Yes (Hospitalization, Disabling, Other)
  Sender: FDA-Public Use
  Company Number: US-MERCK-0310USA00099

PATIENT
  Age: 87 Year
  Sex: Female
  Weight: 57 kg

DRUGS (2)
  1. VIOXX [Suspect]
     Indication: PAIN
     Route: 048
     Dates: start: 20000101, end: 20010101
  2. VIOXX [Suspect]
     Route: 048
     Dates: start: 20030207

REACTIONS (80)
  - ABDOMINAL BRUIT [None]
  - ABDOMINAL PAIN [None]
  - ABDOMINAL PAIN UPPER [None]
  - ACUTE CORONARY SYNDROME [None]
  - ANGINA PECTORIS [None]
  - AORTIC BRUIT [None]
  - AORTIC VALVE INCOMPETENCE [None]
  - APPENDIX DISORDER [None]
  - ARTHRALGIA [None]
  - ATHEROSCLEROSIS [None]
  - BLOOD PRESSURE INCREASED [None]
  - BRONCHITIS [None]
  - CAROTID ARTERY OCCLUSION [None]
  - CARPAL TUNNEL SYNDROME [None]
  - CATARACT [None]
  - CEREBROVASCULAR ACCIDENT [None]
  - CERUMEN IMPACTION [None]
  - CONSTIPATION [None]
  - CONVULSION [None]
  - CORONARY ARTERY DISEASE [None]
  - COUGH [None]
  - CYSTITIS HAEMORRHAGIC [None]
  - DEPRESSED MOOD [None]
  - DILATATION ATRIAL [None]
  - DIVERTICULUM [None]
  - DRUG HYPERSENSITIVITY [None]
  - DYSLIPIDAEMIA [None]
  - DYSURIA [None]
  - EAR PAIN [None]
  - EMOTIONAL DISTRESS [None]
  - FLANK PAIN [None]
  - FOOD ALLERGY [None]
  - GASTRITIS ATROPHIC [None]
  - GASTROOESOPHAGEAL REFLUX DISEASE [None]
  - GRANULOMA [None]
  - HAEMATURIA [None]
  - HEADACHE [None]
  - HEPATIC CYST [None]
  - HERNIA [None]
  - HYPERCHOLESTEROLAEMIA [None]
  - HYPERHOMOCYSTEINAEMIA [None]
  - HYPERKALAEMIA [None]
  - HYPOKALAEMIA [None]
  - INFECTION [None]
  - INJURY [None]
  - INTERVERTEBRAL DISC DEGENERATION [None]
  - KIDNEY SMALL [None]
  - LIPIDS INCREASED [None]
  - LUMBAR SPINAL STENOSIS [None]
  - LUNG DISORDER [None]
  - METAPLASIA [None]
  - MITRAL VALVE INCOMPETENCE [None]
  - MYOCARDIAL INFARCTION [None]
  - MYOCARDIAL ISCHAEMIA [None]
  - NECK INJURY [None]
  - NERVOUS SYSTEM DISORDER [None]
  - OSTEOARTHRITIS [None]
  - OSTEOPOROSIS [None]
  - PAIN IN EXTREMITY [None]
  - PHARYNGOLARYNGEAL PAIN [None]
  - PULMONARY CONGESTION [None]
  - RENAL ARTERY STENOSIS [None]
  - RENAL FAILURE [None]
  - RENAL PAIN [None]
  - ROAD TRAFFIC ACCIDENT [None]
  - ROTATOR CUFF SYNDROME [None]
  - SCIATICA [None]
  - SHOULDER OPERATION [None]
  - SKIN LESION [None]
  - SPINAL OSTEOARTHRITIS [None]
  - TACHYCARDIA [None]
  - TINNITUS [None]
  - TOE DEFORMITY [None]
  - TRICUSPID VALVE INCOMPETENCE [None]
  - UPPER RESPIRATORY TRACT INFECTION [None]
  - URINARY TRACT INFECTION [None]
  - UTERINE DISORDER [None]
  - VENTRICULAR DYSFUNCTION [None]
  - VENTRICULAR HYPERTROPHY [None]
  - VISUAL DISTURBANCE [None]
